FAERS Safety Report 7982093-8 (Version None)
Quarter: 2011Q4

REPORT INFORMATION
  Report Type: 
  Country: None (occurrence: None)
  Receive Date: 20111215
  Receipt Date: 20111206
  Transmission Date: 20120403
  Serious: Yes (Other)
  Sender: FDA-Public Use
  Company Number: US-SANOFI-AVENTIS-2011SA080345

PATIENT
  Age: 45 Year
  Sex: Male

DRUGS (5)
  1. METHADONE HCL [Interacting]
     Dosage: DOSE: MORE THAN TWICE THE PRESCRIBED DOSE.
     Route: 048
  2. DESIPRAMINE HYDROCHLORIDE [Suspect]
     Indication: INSOMNIA
     Route: 065
  3. METHADONE HCL [Interacting]
     Route: 048
  4. METHADONE HCL [Interacting]
     Indication: PAIN
     Route: 048
  5. DULOXETINE HYDROCHLORIDE [Interacting]
     Route: 065

REACTIONS (12)
  - SEROTONIN SYNDROME [None]
  - HYPERREFLEXIA [None]
  - TREMOR [None]
  - FATIGUE [None]
  - INSOMNIA [None]
  - MUSCULOSKELETAL STIFFNESS [None]
  - ANXIETY [None]
  - DRUG INTERACTION [None]
  - INTENTIONAL OVERDOSE [None]
  - MUSCULAR WEAKNESS [None]
  - HYPERTENSION [None]
  - HYPERHIDROSIS [None]
